FAERS Safety Report 19114863 (Version 3)
Quarter: 2021Q2

REPORT INFORMATION
  Report Type: Spontaneous
  Country: FR (occurrence: FR)
  Receive Date: 20210409
  Receipt Date: 20210511
  Transmission Date: 20210717
  Serious: Yes (Death, Life-Threatening, Hospitalization)
  Sender: FDA-Public Use
  Company Number: FR-BAYER-2021-118965

PATIENT
  Age: 61 Year
  Sex: Male
  Weight: 104 kg

DRUGS (13)
  1. APROTININ [Suspect]
     Active Substance: APROTININ
     Indication: VENTRICULAR ASSIST DEVICE INSERTION
     Dosage: 3 MEGA?INTERNATIONAL UNIT TOTAL LOADING DOSE 1 MILLION IU PUMP PRIMING DOSE 1 MILLION IU MAINTENANCE
     Route: 042
     Dates: start: 20210211, end: 20210211
  2. ATORVASTATIN [Suspect]
     Active Substance: ATORVASTATIN
  3. TRACRIUM [Concomitant]
     Active Substance: ATRACURIUM BESYLATE
     Indication: PRODUCT USED FOR UNKNOWN INDICATION
     Dosage: UNK
     Route: 065
  4. CONFIDEX [Concomitant]
     Active Substance: COAGULATION FACTOR IX HUMAN\COAGULATION FACTOR VII HUMAN\COAGULATION FACTOR X HUMAN\PROTEIN C\PROTEIN S HUMAN\PROTHROMBIN
     Dosage: 2000 IU INTERNATIONAL UNIT(S)
     Dates: start: 20210211, end: 20210211
  5. CONFIDEX [Suspect]
     Active Substance: COAGULATION FACTOR IX HUMAN\COAGULATION FACTOR VII HUMAN\COAGULATION FACTOR X HUMAN\PROTEIN C\PROTEIN S HUMAN\PROTHROMBIN
  6. RAMIPRIL. [Suspect]
     Active Substance: RAMIPRIL
  7. CLOPIDOGREL [Suspect]
     Active Substance: CLOPIDOGREL BISULFATE
  8. PRADAXA [Suspect]
     Active Substance: DABIGATRAN ETEXILATE MESYLATE
  9. TRASYLOL [Suspect]
     Active Substance: APROTININ
  10. HEPARIN [Concomitant]
     Active Substance: HEPARIN SODIUM
     Indication: PRODUCT USED FOR UNKNOWN INDICATION
     Dosage: UNK
     Route: 065
  11. ACETYLSALICYLIC ACID LYSINATE [Suspect]
     Active Substance: ASPIRIN DL-LYSINE
  12. SUFENTANIL [Concomitant]
     Active Substance: SUFENTANIL
     Indication: PRODUCT USED FOR UNKNOWN INDICATION
     Dosage: UNK
     Route: 065
  13. PROPOFOL. [Concomitant]
     Active Substance: PROPOFOL
     Indication: PRODUCT USED FOR UNKNOWN INDICATION
     Dosage: UNK
     Route: 065

REACTIONS (5)
  - Product use in unapproved indication [Unknown]
  - Coronary artery occlusion [Not Recovered/Not Resolved]
  - Off label use [Unknown]
  - Cerebrovascular accident [Not Recovered/Not Resolved]
  - Hypoxic-ischaemic encephalopathy [Not Recovered/Not Resolved]

NARRATIVE: CASE EVENT DATE: 20210211
